FAERS Safety Report 6956486-1 (Version None)
Quarter: 2010Q3

REPORT INFORMATION
  Report Type: 
  Country: None (occurrence: None)
  Receive Date: 20100830
  Receipt Date: 20100824
  Transmission Date: 20110219
  Serious: Yes (Other)
  Sender: FDA-Public Use
  Company Number: JP-BAYER-201014186BYL

PATIENT
  Age: 0 Hour

DRUGS (1)
  1. BUFFERIN [Suspect]
     Indication: KAWASAKI'S DISEASE
     Route: 064

REACTIONS (1)
  - RETINOPATHY OF PREMATURITY [None]
